FAERS Safety Report 10996998 (Version 1)
Quarter: 2015Q2

REPORT INFORMATION
  Report Type: Spontaneous
  Country: US (occurrence: None)
  Receive Date: 20150406
  Receipt Date: 20150406
  Transmission Date: 20150821
  Serious: Yes (Other)
  Sender: FDA-Public Use
  Company Number: ADR-2015-00635

PATIENT
  Age: 49 Year
  Sex: Female

DRUGS (7)
  1. SKELAXIN [Suspect]
     Active Substance: METAXALONE
  2. PRIALT [Suspect]
     Active Substance: ZICONOTIDE ACETATE
  3. COMPOUNDED BACLOFEN INTRATHECAL [Suspect]
     Active Substance: BACLOFEN
     Indication: POST LAMINECTOMY SYNDROME
  4. SUFENTANIL [Suspect]
     Active Substance: SUFENTANIL
     Indication: POST LAMINECTOMY SYNDROME
  5. GABAPENTIN. [Suspect]
     Active Substance: GABAPENTIN
     Route: 048
  6. BUPIVACAINE INTRATHECAL - 30 MG/ML [Suspect]
     Active Substance: BUPIVACAINE
     Dosage: ??
  7. MORPHINE SULFATE. [Suspect]
     Active Substance: MORPHINE SULFATE
     Dosage: 15 MG TABLET EVERY 4 HOURS AS NEEDED?

REACTIONS (23)
  - Paraesthesia [None]
  - Dyspepsia [None]
  - Sciatica [None]
  - Weight decreased [None]
  - Back pain [None]
  - Device malfunction [None]
  - Hypoaesthesia [None]
  - Muscle spasms [None]
  - Dizziness [None]
  - Menopause [None]
  - Sleep disorder [None]
  - Vision blurred [None]
  - Pain [None]
  - Drug withdrawal syndrome [None]
  - Headache [None]
  - Weight increased [None]
  - Device defective [None]
  - Neck pain [None]
  - Swelling [None]
  - Pain in extremity [None]
  - Somnolence [None]
  - Fatigue [None]
  - Nausea [None]
